FAERS Safety Report 4615346-1 (Version None)
Quarter: 2005Q1

REPORT INFORMATION
  Report Type: 
  Country: None (occurrence: None)
  Receive Date: 20050317
  Receipt Date: 20050303
  Transmission Date: 20050727
  Serious: Yes (Hospitalization)
  Sender: FDA-Public Use
  Company Number: HU-2005-003010

PATIENT
  Sex: Female

DRUGS (4)
  1. BETAFERON 250 UG, 500 UG AND COPAXONE(CODE NOT BROKEN) INJECTION, 500U [Suspect]
     Indication: MULTIPLE SCLEROSIS
     Dosage: 0.5 ML, EVERY 2D, SUBCUTANEOUS; SEE IMAGE
     Route: 058
     Dates: start: 20050218, end: 20050228
  2. BETAFERON 250 UG, 500 UG AND COPAXONE(CODE NOT BROKEN) INJECTION, 500U [Suspect]
     Indication: MULTIPLE SCLEROSIS
     Dosage: 0.5 ML, EVERY 2D, SUBCUTANEOUS; SEE IMAGE
     Route: 058
     Dates: start: 20050110
  3. BETAFERON 250 UG, 500 UG AND COPAXONE(CODE NOT BROKEN) INJECTION, 500U [Suspect]
     Indication: MULTIPLE SCLEROSIS
     Dosage: 0.5 ML, EVERY 2D, SUBCUTANEOUS; SEE IMAGE
     Route: 058
     Dates: start: 20050301
  4. TRI-REGOL(LEVONORGESTREL, ETHINYLESTRADIOL) [Suspect]
     Indication: ORAL CONTRACEPTION
     Dates: end: 20050218

REACTIONS (4)
  - CHOLELITHIASIS [None]
  - CONDITION AGGRAVATED [None]
  - HEPATIC STEATOSIS [None]
  - LIVER DISORDER [None]
